FAERS Safety Report 11827462 (Version 4)
Quarter: 2017Q4

REPORT INFORMATION
  Report Type: Report from Study
  Country: US (occurrence: US)
  Receive Date: 20151211
  Receipt Date: 20171025
  Transmission Date: 20180320
  Serious: Yes (Other)
  Sender: FDA-Public Use
  Company Number: PHEH2015US025572

PATIENT
  Age: 27 Year
  Sex: Male

DRUGS (3)
  1. AFINITOR [Suspect]
     Active Substance: EVEROLIMUS
     Dosage: 10 MG, QD
     Route: 065
     Dates: start: 201701
  2. AFINITOR [Suspect]
     Active Substance: EVEROLIMUS
     Indication: BRAIN NEOPLASM BENIGN
     Dosage: 7.5 MG, QD
     Route: 048
     Dates: start: 20101229
  3. KEPPRA [Concomitant]
     Active Substance: LEVETIRACETAM
     Indication: PRODUCT USED FOR UNKNOWN INDICATION
     Route: 065

REACTIONS (4)
  - Oral pain [Unknown]
  - Mouth ulceration [Unknown]
  - Seizure [Unknown]
  - Fatigue [Unknown]

NARRATIVE: CASE EVENT DATE: 20151204
